FAERS Safety Report 9454500 (Version 1)
Quarter: 2013Q3

REPORT INFORMATION
  Report Type: Spontaneous
  Country: US (occurrence: US)
  Receive Date: 20130812
  Receipt Date: 20130812
  Transmission Date: 20140515
  Serious: Yes (Hospitalization)
  Sender: FDA-Public Use
  Company Number: US-GLAXOSMITHKLINE-A1036831A

PATIENT
  Age: 86 Year
  Sex: Male

DRUGS (13)
  1. VOTRIENT [Suspect]
     Indication: RENAL CELL CARCINOMA
     Dosage: 600MG PER DAY
     Route: 048
     Dates: start: 20130130
  2. PROSCAR [Concomitant]
  3. RAPAFLO [Concomitant]
  4. PROCHLORPERAZIN [Concomitant]
  5. SYNTHROID [Concomitant]
  6. IRON [Concomitant]
  7. VITAMIN B 12 [Concomitant]
  8. BABY ASPIRIN [Concomitant]
  9. STOOL SOFTENER [Concomitant]
  10. BOTOX INJECTIONS [Concomitant]
  11. MIRTAZAPINE [Concomitant]
  12. LASIX [Concomitant]
  13. TYLENOL [Concomitant]

REACTIONS (15)
  - Neoplasm malignant [Unknown]
  - Pneumonia [Unknown]
  - Lung neoplasm malignant [Unknown]
  - Anaemia [Not Recovered/Not Resolved]
  - Back pain [Unknown]
  - Hepatic enzyme increased [Recovered/Resolved]
  - Prostatomegaly [Unknown]
  - Bladder catheterisation [Not Recovered/Not Resolved]
  - Fatigue [Not Recovered/Not Resolved]
  - Diarrhoea [Unknown]
  - Nausea [Recovered/Resolved]
  - Vomiting [Recovered/Resolved]
  - Dysuria [Unknown]
  - Blood potassium increased [Recovered/Resolved]
  - Drug ineffective [Unknown]
